FAERS Safety Report 4722087-9 (Version None)
Quarter: 2005Q3

REPORT INFORMATION
  Report Type: 
  Country: None (occurrence: None)
  Receive Date: 20050720
  Receipt Date: 20050711
  Transmission Date: 20060218
  Serious: Yes (Hospitalization, Other)
  Sender: FDA-Public Use
  Company Number: 2005089182

PATIENT
  Age: 53 Year
  Sex: Female
  Weight: 74.8435 kg

DRUGS (9)
  1. ZOLOFT [Suspect]
     Indication: DEPRESSION
     Dosage: 50 MG (50 MG 1 IN 1 D)ORAL
     Route: 048
     Dates: start: 20050101
  2. SOMA [Concomitant]
  3. LORCET-HD [Concomitant]
  4. CAPTOPRIL [Concomitant]
  5. HYDROCHLOROTHIAZIDE [Concomitant]
  6. AMITRITPYLINE (AMITRIPTYLINE) [Concomitant]
  7. CLONIDINE [Concomitant]
  8. NEURONTIN [Concomitant]
  9. ATENOLOL [Concomitant]

REACTIONS (6)
  - BRONCHITIS [None]
  - DYSPNOEA [None]
  - FEELING ABNORMAL [None]
  - MOVEMENT DISORDER [None]
  - PAIN [None]
  - PLEURISY [None]
